FAERS Safety Report 7011057-6 (Version None)
Quarter: 2010Q3

REPORT INFORMATION
  Report Type: 
  Country: None (occurrence: None)
  Receive Date: 20100923
  Receipt Date: 20081014
  Transmission Date: 20110219
  Serious: No
  Sender: FDA-Public Use
  Company Number: US-WYE-H06391408

PATIENT
  Age: 57 Year
  Sex: Female

DRUGS (5)
  1. PREMARIN [Suspect]
     Indication: VULVOVAGINAL DRYNESS
     Dosage: 0.3MG AT NIGHT
     Route: 067
     Dates: start: 20081010
  2. CODEINE [Concomitant]
     Indication: ARTHRALGIA
     Dosage: NOT PROVIDED
  3. CODEINE [Concomitant]
     Indication: BACK PAIN
  4. IBUPROFEN [Concomitant]
     Indication: PAIN
     Dosage: 800 MG PRN
  5. BUSPAR [Concomitant]

REACTIONS (2)
  - APPLICATION SITE IRRITATION [None]
  - PRODUCT QUALITY ISSUE [None]
